FAERS Safety Report 7041097-2 (Version None)
Quarter: 2010Q4

REPORT INFORMATION
  Report Type: 
  Country: None (occurrence: None)
  Receive Date: 20101013
  Receipt Date: 20101005
  Transmission Date: 20110411
  Serious: Yes (Hospitalization)
  Sender: FDA-Public Use
  Company Number: CA-JNJFOC-20101002146

PATIENT
  Age: 46 Year
  Sex: Female
  Weight: 81.65 kg

DRUGS (8)
  1. GOLIMUMAB [Suspect]
     Indication: RHEUMATOID ARTHRITIS
     Route: 058
  2. METHOTREXATE [Concomitant]
     Indication: RHEUMATOID ARTHRITIS
     Route: 048
  3. DILTIAZEM [Concomitant]
     Indication: HYPERTENSION
     Route: 048
  4. DILAUDID [Concomitant]
     Indication: ANALGESIC THERAPY
     Route: 048
  5. TYLENOL AND CODEINE [Concomitant]
     Indication: ANALGESIC THERAPY
     Route: 048
  6. TYLENOL AND CODEINE [Concomitant]
     Route: 048
  7. CYCLOBENZAPRINE [Concomitant]
     Indication: ANALGESIC THERAPY
     Route: 048
  8. CYCLOBENZAPRINE [Concomitant]
     Route: 048

REACTIONS (3)
  - ASTHENIA [None]
  - FATIGUE [None]
  - RECTAL HAEMORRHAGE [None]
